APPROVED DRUG PRODUCT: BONJESTA
Active Ingredient: DOXYLAMINE SUCCINATE; PYRIDOXINE HYDROCHLORIDE
Strength: 20MG;20MG
Dosage Form/Route: TABLET, EXTENDED RELEASE;ORAL
Application: N209661 | Product #001
Applicant: DUCHESNAY INC
Approved: Nov 7, 2016 | RLD: Yes | RS: Yes | Type: RX

PATENTS:
Patent 9937132 | Expires: Feb 18, 2033
Patent 9375404 | Expires: Feb 18, 2033
Patent 9526703 | Expires: Feb 18, 2033
Patent 9089489 | Expires: Feb 18, 2033